FAERS Safety Report 11094522 (Version 1)
Quarter: 2015Q2

REPORT INFORMATION
  Report Type: Spontaneous
  Country: US (occurrence: US)
  Receive Date: 20150506
  Receipt Date: 20150506
  Transmission Date: 20150821
  Serious: No
  Sender: FDA-Public Use
  Company Number: US-ANACOR-2015ANA00004

PATIENT
  Age: 65 Year
  Sex: Female

DRUGS (2)
  1. ULORIC [Concomitant]
     Active Substance: FEBUXOSTAT
  2. KERYDIN [Suspect]
     Active Substance: TAVABOROLE
     Indication: ONYCHOMYCOSIS
     Dosage: 1 GTT, 1X/DAY
     Route: 061
     Dates: start: 20141215, end: 201412

REACTIONS (1)
  - Application site erythema [Recovered/Resolved]

NARRATIVE: CASE EVENT DATE: 201412
